FAERS Safety Report 6432567-6 (Version None)
Quarter: 2009Q4

REPORT INFORMATION
  Report Type: 
  Country: None (occurrence: None)
  Receive Date: 20091109
  Receipt Date: 20091028
  Transmission Date: 20100525
  Serious: Yes (Other)
  Sender: FDA-Public Use
  Company Number: CH-ROCHE-657341

PATIENT
  Sex: Male
  Weight: 63 kg

DRUGS (5)
  1. CELLCEPT [Suspect]
     Indication: HEART TRANSPLANT
     Route: 065
     Dates: start: 20050101
  2. PROGRAF [Concomitant]
     Indication: HEART TRANSPLANT
     Dates: start: 20080101
  3. ELTROXIN [Concomitant]
     Indication: HYPOTHYROIDISM
     Dates: start: 20050101
  4. TRIATEC [Concomitant]
     Indication: HYPERTENSION
     Dates: start: 20060101
  5. PRAVASTATIN [Concomitant]
     Dates: start: 20060101

REACTIONS (2)
  - COGNITIVE DISORDER [None]
  - MEMORY IMPAIRMENT [None]
